FAERS Safety Report 5661956-2 (Version None)
Quarter: 2008Q1

REPORT INFORMATION
  Report Type: 
  Country: None (occurrence: None)
  Receive Date: 20080310
  Receipt Date: 20080310
  Transmission Date: 20080703
  Serious: Yes (Other)
  Sender: FDA-Public Use
  Company Number: None

PATIENT
  Age: 37 Year
  Sex: Female
  Weight: 86.1834 kg

DRUGS (1)
  1. SKELAXIN [Suspect]
     Indication: PAIN
     Dosage: 800MG PRN PO
     Route: 048

REACTIONS (1)
  - URTICARIA [None]
